FAERS Safety Report 24774840 (Version 10)
Quarter: 2025Q4

REPORT INFORMATION
  Report Type: Spontaneous
  Country: US (occurrence: US)
  Receive Date: 20241226
  Receipt Date: 20251222
  Transmission Date: 20260117
  Serious: Yes (Hospitalization)
  Sender: KARYOPHARM THERAPEUTICS
  Company Number: US-KARYOPHARM-2024KPT001925

PATIENT

DRUGS (16)
  1. XPOVIO [Suspect]
     Active Substance: SELINEXOR
     Indication: Plasma cell myeloma
     Dosage: 60 MG WEEKLY
     Route: 048
     Dates: start: 20241222
  2. XPOVIO [Suspect]
     Active Substance: SELINEXOR
     Dosage: 40 MG WEEKLY
     Route: 048
  3. XPOVIO [Suspect]
     Active Substance: SELINEXOR
     Dosage: 40 MG WEEKLY
     Route: 048
  4. POMALYST [Concomitant]
     Active Substance: POMALIDOMIDE
  5. ACYCLOVIR [Concomitant]
     Active Substance: ACYCLOVIR
  6. AMLODIPINE [Concomitant]
     Active Substance: AMLODIPINE BESYLATE
  7. ASPIRIN [Concomitant]
     Active Substance: ASPIRIN
  8. CLONIDINE [Concomitant]
     Active Substance: CLONIDINE
  9. DEXAMETHASONE [Concomitant]
     Active Substance: DEXAMETHASONE
  10. HYDROCODONE BITARTRATE AND ACETAMINOPHEN [Concomitant]
     Active Substance: ACETAMINOPHEN\HYDROCODONE BITARTRATE
  11. LOPERAMIDE [Concomitant]
     Active Substance: LOPERAMIDE
  12. OLANZAPINE [Concomitant]
     Active Substance: OLANZAPINE
  13. PROCHLORPERAZINE [Concomitant]
     Active Substance: PROCHLORPERAZINE
  14. FUROSEMIDE [Concomitant]
     Active Substance: FUROSEMIDE
  15. CYCLOBENZAPRINE [Concomitant]
     Active Substance: CYCLOBENZAPRINE
  16. DICLOFENAC [Concomitant]
     Active Substance: DICLOFENAC

REACTIONS (12)
  - Neoplasm [Not Recovered/Not Resolved]
  - Peripheral swelling [Not Recovered/Not Resolved]
  - Gait disturbance [Not Recovered/Not Resolved]
  - Abdominal discomfort [Not Recovered/Not Resolved]
  - Back disorder [Unknown]
  - Dyspepsia [Unknown]
  - Abdominal distension [Unknown]
  - Flatulence [Unknown]
  - Asthenia [Not Recovered/Not Resolved]
  - Fatigue [Not Recovered/Not Resolved]
  - Nausea [Not Recovered/Not Resolved]
  - Platelet count decreased [Unknown]

NARRATIVE: CASE EVENT DATE: 20241201
